FAERS Safety Report 8138437-X (Version None)
Quarter: 2012Q1

REPORT INFORMATION
  Report Type: 
  Country: None (occurrence: None)
  Receive Date: 20120215
  Receipt Date: 20120126
  Transmission Date: 20120608
  Serious: Yes (Hospitalization)
  Sender: FDA-Public Use
  Company Number: US-ROCHE-1031082

PATIENT
  Sex: Male

DRUGS (1)
  1. XELODA [Suspect]
     Indication: OESOPHAGEAL CARCINOMA
     Dosage: 1000 MG AT MORNING 1500 MG AT EVENING
     Route: 048
     Dates: start: 20111115, end: 20111223

REACTIONS (1)
  - INTESTINAL RESECTION [None]
